FAERS Safety Report 18820998 (Version 1)
Quarter: 2021Q1

REPORT INFORMATION
  Report Type: Spontaneous
  Country: US (occurrence: US)
  Receive Date: 20210201
  Receipt Date: 20210201
  Transmission Date: 20210419
  Serious: No
  Sender: FDA-Public Use
  Company Number: None

PATIENT
  Age: 84 Year
  Sex: Female
  Weight: 65.77 kg

DRUGS (16)
  1. ACIPHEX 20MG [Concomitant]
     Dates: start: 20170227
  2. CLOTRIMAZOLE. [Concomitant]
     Active Substance: CLOTRIMAZOLE
  3. FUROSEMIDE. [Concomitant]
     Active Substance: FUROSEMIDE
  4. IPRATROPIUM?ALBUTEROL NEBULIZER SOLUTION [Concomitant]
  5. PAROXETINE. [Concomitant]
     Active Substance: PAROXETINE
  6. FENOFIBRATE. [Concomitant]
     Active Substance: FENOFIBRATE
  7. ADVAIR HFA 115?21MCG [Concomitant]
     Dosage: ?          OTHER DOSE:115?21MCG;?
     Dates: start: 20170227
  8. BENICAR [Concomitant]
     Active Substance: OLMESARTAN MEDOXOMIL
  9. ALPRAZOLAM 0.125 [Concomitant]
  10. ASPIIRIN 81 MG [Concomitant]
  11. POTASSIUM CHLORIDE ER [Concomitant]
     Active Substance: POTASSIUM CHLORIDE
  12. PROAIR HFA [Concomitant]
     Active Substance: ALBUTEROL SULFATE
  13. BENZONATATE. [Concomitant]
     Active Substance: BENZONATATE
  14. IPRATROPIUM BROMIDE. [Concomitant]
     Active Substance: IPRATROPIUM BROMIDE
  15. GAMUNEX [Suspect]
     Active Substance: HUMAN IMMUNOGLOBULIN G
     Indication: HYPOGAMMAGLOBULINAEMIA
     Dosage: ?          OTHER ROUTE:IV?
     Route: 042
     Dates: start: 20171030
  16. RESTASIS [Concomitant]
     Active Substance: CYCLOSPORINE

REACTIONS (2)
  - Urticaria [None]
  - Pruritus [None]

NARRATIVE: CASE EVENT DATE: 20210129
